FAERS Safety Report 25714278 (Version 1)
Quarter: 2025Q3

REPORT INFORMATION
  Report Type: Spontaneous
  Country: US (occurrence: US)
  Receive Date: 20250822
  Receipt Date: 20250822
  Transmission Date: 20251020
  Serious: Yes (Other)
  Sender: STRIDES
  Company Number: US-STRIDES ARCOLAB LIMITED-2025SP000912

PATIENT
  Age: 20 Year
  Sex: Male

DRUGS (17)
  1. AMLODIPINE [Suspect]
     Active Substance: AMLODIPINE BESYLATE
     Indication: Hypertension
     Route: 065
  2. LABETALOL [Suspect]
     Active Substance: LABETALOL
     Indication: Hypertension
     Route: 065
  3. ISRADIPINE [Suspect]
     Active Substance: ISRADIPINE
     Indication: Hypertension
     Route: 065
  4. DINUTUXIMAB [Concomitant]
     Active Substance: DINUTUXIMAB
     Indication: Neuroblastoma
     Route: 065
  5. DINUTUXIMAB [Concomitant]
     Active Substance: DINUTUXIMAB
     Indication: Metastases to bone
     Route: 065
  6. DINUTUXIMAB [Concomitant]
     Active Substance: DINUTUXIMAB
     Indication: Metastases to lymph nodes
  7. SARGRAMOSTIM [Concomitant]
     Active Substance: SARGRAMOSTIM
     Indication: Neuroblastoma
     Route: 065
  8. SARGRAMOSTIM [Concomitant]
     Active Substance: SARGRAMOSTIM
     Indication: Metastases to bone
  9. SARGRAMOSTIM [Concomitant]
     Active Substance: SARGRAMOSTIM
     Indication: Metastases to lymph nodes
  10. HYDROMORPHONE [Concomitant]
     Active Substance: HYDROMORPHONE
     Indication: Pain
     Route: 065
  11. ECULIZUMAB [Concomitant]
     Active Substance: ECULIZUMAB
     Indication: Atypical haemolytic uraemic syndrome
     Route: 065
  12. ECULIZUMAB [Concomitant]
     Active Substance: ECULIZUMAB
     Route: 065
  13. RAVULIZUMAB [Concomitant]
     Active Substance: RAVULIZUMAB
     Indication: Atypical haemolytic uraemic syndrome
     Route: 065
  14. RAVULIZUMAB [Concomitant]
     Active Substance: RAVULIZUMAB
     Route: 065
  15. ISOTRETINOIN [Concomitant]
     Active Substance: ISOTRETINOIN
     Indication: Neuroblastoma
     Route: 065
  16. ISOTRETINOIN [Concomitant]
     Active Substance: ISOTRETINOIN
     Indication: Metastases to bone
  17. ISOTRETINOIN [Concomitant]
     Active Substance: ISOTRETINOIN
     Indication: Metastases to lymph nodes

REACTIONS (1)
  - Treatment noncompliance [Unknown]
